FAERS Safety Report 18495544 (Version 1)
Quarter: 2020Q4

REPORT INFORMATION
  Report Type: Spontaneous
  Country: US (occurrence: US)
  Receive Date: 20201112
  Receipt Date: 20201112
  Transmission Date: 20210114
  Serious: No
  Sender: FDA-Public Use
  Company Number: None

PATIENT
  Age: 12 Year
  Sex: Male
  Weight: 33.3 kg

DRUGS (2)
  1. METHYLPHENIDATE ER 36 MG TAB [Suspect]
     Active Substance: METHYLPHENIDATE HYDROCHLORIDE
     Indication: ATTENTION DEFICIT HYPERACTIVITY DISORDER
     Dosage: ?          QUANTITY:1 TABLET(S);?
     Route: 048
     Dates: start: 20201029, end: 20201111
  2. CONCERTA [Concomitant]
     Active Substance: METHYLPHENIDATE HYDROCHLORIDE

REACTIONS (4)
  - Drug ineffective [None]
  - Abnormal behaviour [None]
  - Product substitution issue [None]
  - Manufacturing materials issue [None]

NARRATIVE: CASE EVENT DATE: 20201030
